FAERS Safety Report 7927693-6 (Version None)
Quarter: 2011Q4

REPORT INFORMATION
  Report Type: 
  Country: None (occurrence: None)
  Receive Date: 20111118
  Receipt Date: 20111108
  Transmission Date: 20120403
  Serious: Yes (Death, Other)
  Sender: FDA-Public Use
  Company Number: NL-ACTELION-A-CH2011-52795

PATIENT
  Sex: Female
  Weight: 52 kg

DRUGS (2)
  1. TRACLEER [Suspect]
     Indication: SKIN ULCER
     Dosage: 125 MG, BID
     Route: 048
     Dates: start: 20081020, end: 20101201
  2. TRACLEER [Suspect]
     Dosage: UNK , UNK
     Route: 048
     Dates: start: 20071020

REACTIONS (1)
  - EUTHANASIA [None]
